FAERS Safety Report 13693314 (Version 2)
Quarter: 2017Q3

REPORT INFORMATION
  Report Type: Report from Study
  Country: None (occurrence: CA)
  Receive Date: 20170627
  Receipt Date: 20170809
  Transmission Date: 20171127
  Serious: Yes (Disabling)
  Sender: FDA-Public Use
  Company Number: CA-ABBVIE-17K-028-2016671-00

PATIENT
  Sex: Female

DRUGS (1)
  1. HUMIRA [Suspect]
     Active Substance: ADALIMUMAB
     Indication: ANKYLOSING SPONDYLITIS
     Route: 058
     Dates: start: 20160829

REACTIONS (10)
  - Irritable bowel syndrome [Not Recovered/Not Resolved]
  - Decreased appetite [Not Recovered/Not Resolved]
  - Psoriasis [Not Recovered/Not Resolved]
  - Back pain [Not Recovered/Not Resolved]
  - Malaise [Not Recovered/Not Resolved]
  - Faeces discoloured [Not Recovered/Not Resolved]
  - Arthralgia [Not Recovered/Not Resolved]
  - Haematochezia [Not Recovered/Not Resolved]
  - Vomiting [Not Recovered/Not Resolved]
  - Haemoglobin decreased [Not Recovered/Not Resolved]

NARRATIVE: CASE EVENT DATE: 2017
